FAERS Safety Report 21306225 (Version 1)
Quarter: 2022Q3

REPORT INFORMATION
  Report Type: Spontaneous
  Country: US (occurrence: None)
  Receive Date: 20220907
  Receipt Date: 20220907
  Transmission Date: 20221027
  Serious: No
  Sender: FDA-Public Use
  Company Number: None

PATIENT
  Age: 63 Year
  Sex: Female
  Weight: 87.09 kg

DRUGS (1)
  1. RINVOQ [Suspect]
     Active Substance: UPADACITINIB
     Indication: Connective tissue disorder
     Dosage: FREQUENCY : DAILY;?
     Route: 048
     Dates: start: 202112

REACTIONS (2)
  - Blood glucose decreased [None]
  - Urinary tract infection [None]
